FAERS Safety Report 16657402 (Version 1)
Quarter: 2019Q3

REPORT INFORMATION
  Report Type: Spontaneous
  Country: CN (occurrence: CN)
  Receive Date: 20190801
  Receipt Date: 20190801
  Transmission Date: 20191004
  Serious: Yes (Hospitalization)
  Sender: FDA-Public Use
  Company Number: CN-ASTRAZENECA-2019SF07752

PATIENT
  Age: 2747 Week
  Sex: Male
  Weight: 60 kg

DRUGS (6)
  1. LOSEC [Concomitant]
     Active Substance: OMEPRAZOLE
     Indication: ABDOMINAL DISCOMFORT
     Route: 041
     Dates: start: 20190621, end: 20190624
  2. CYTARABINE HYDROCHLORIDE [Concomitant]
     Active Substance: CYTARABINE HYDROCHLORIDE
     Indication: LEUKAEMIA
     Route: 041
     Dates: start: 20190621, end: 20190623
  3. DEXAMETHASONE SODIUM PHOSPHATE. [Concomitant]
     Active Substance: DEXAMETHASONE SODIUM PHOSPHATE
     Indication: ANTIINFLAMMATORY THERAPY
     Route: 041
     Dates: start: 20190621, end: 20190623
  4. GLUTATHIONE [Concomitant]
     Active Substance: GLUTATHIONE
     Indication: LIVER DISORDER
     Route: 041
     Dates: start: 20190621, end: 20190701
  5. PALONOSETRON HYDROCHLORIDE. [Concomitant]
     Active Substance: PALONOSETRON HYDROCHLORIDE
     Indication: ANTIEMETIC SUPPORTIVE CARE
     Route: 041
     Dates: start: 20190621, end: 20190623
  6. LOSEC [Suspect]
     Active Substance: OMEPRAZOLE
     Route: 048

REACTIONS (1)
  - Liver function test abnormal [Recovered/Resolved]

NARRATIVE: CASE EVENT DATE: 20190624
